FAERS Safety Report 17035786 (Version 1)
Quarter: 2019Q4

REPORT INFORMATION
  Report Type: Spontaneous
  Country: US (occurrence: US)
  Receive Date: 20191114
  Receipt Date: 20191114
  Transmission Date: 20200122
  Serious: Yes (Other)
  Sender: FDA-Public Use
  Company Number: None

PATIENT
  Age: 39 Year
  Sex: Female

DRUGS (7)
  1. ZYRTEC [Concomitant]
     Active Substance: CETIRIZINE HYDROCHLORIDE
  2. VITAMIN D [Concomitant]
     Active Substance: VITAMIN D NOS
  3. BENADRYL [Concomitant]
     Active Substance: DIPHENHYDRAMINE HYDROCHLORIDE
  4. EMGALITY [Suspect]
     Active Substance: GALCANEZUMAB-GNLM
     Indication: MIGRAINE
     Dosage: ?          QUANTITY:1 INJECTION(S);OTHER FREQUENCY:ONCE EVERY 4 WEEKS;?
     Route: 058
     Dates: start: 20181206, end: 20181206
  5. RANITIDINE. [Concomitant]
     Active Substance: RANITIDINE
  6. VITAMIN E [Concomitant]
     Active Substance: .ALPHA.-TOCOPHEROL
  7. LISINOPRIL. [Concomitant]
     Active Substance: LISINOPRIL

REACTIONS (12)
  - Fluid retention [None]
  - Rash macular [None]
  - Blister [None]
  - Cellulitis [None]
  - Swelling face [None]
  - Pruritus [None]
  - Urticaria [None]
  - Localised infection [None]
  - Peripheral swelling [None]
  - Rash [None]
  - Dermatitis allergic [None]
  - Hypertension [None]

NARRATIVE: CASE EVENT DATE: 20181223
